FAERS Safety Report 20723992 (Version 2)
Quarter: 2022Q2

REPORT INFORMATION
  Report Type: Spontaneous
  Country: DE (occurrence: DE)
  Receive Date: 20220419
  Receipt Date: 20220420
  Transmission Date: 20220720
  Serious: Yes (Other)
  Sender: FDA-Public Use
  Company Number: DE-NOVARTISPH-NVSC2022DE086521

PATIENT
  Age: 85 Year
  Sex: Female

DRUGS (2)
  1. EXJADE [Suspect]
     Active Substance: DEFERASIROX
     Indication: Product used for unknown indication
     Dosage: 360 MG, TID
     Route: 065
     Dates: start: 2019
  2. EXJADE [Suspect]
     Active Substance: DEFERASIROX
     Dosage: 360 MG, BID
     Route: 065

REACTIONS (4)
  - Hypertension [Recovered/Resolved]
  - Serum ferritin increased [Unknown]
  - Palpitations [Recovered/Resolved]
  - Inappropriate schedule of product administration [Unknown]

NARRATIVE: CASE EVENT DATE: 20190101
